FAERS Safety Report 8792458 (Version 2)
Quarter: 2015Q2

REPORT INFORMATION
  Report Type: Report from Study
  Country: US (occurrence: US)
  Receive Date: 20120918
  Receipt Date: 20150630
  Transmission Date: 20150821
  Serious: Yes (Death)
  Sender: FDA-Public Use
  Company Number: US-ROCHE-1123154

PATIENT
  Sex: Female

DRUGS (16)
  1. FEMARA [Suspect]
     Active Substance: LETROZOLE
     Indication: PAIN
     Route: 065
  2. ETOPOSIDE. [Concomitant]
     Active Substance: ETOPOSIDE
  3. AVASTIN [Suspect]
     Active Substance: BEVACIZUMAB
     Indication: METASTASES TO LIVER
  4. BENADRYL [Concomitant]
     Active Substance: DIPHENHYDRAMINE HYDROCHLORIDE
     Route: 048
  5. FLU VACCINE [Concomitant]
     Active Substance: INFLUENZA VIRUS VACCINE
     Route: 065
  6. GEMZAR [Concomitant]
     Active Substance: GEMCITABINE HYDROCHLORIDE
  7. OXYCONTIN [Concomitant]
     Active Substance: OXYCODONE HYDROCHLORIDE
     Indication: PAIN
     Route: 065
  8. AVASTIN [Suspect]
     Active Substance: BEVACIZUMAB
     Indication: BREAST CANCER FEMALE
     Route: 042
     Dates: start: 20051025
  9. TYLENOL [Concomitant]
     Active Substance: ACETAMINOPHEN
     Route: 048
  10. XELODA [Suspect]
     Active Substance: CAPECITABINE
     Indication: PRODUCT USED FOR UNKNOWN INDICATION
     Route: 065
  11. FEMARA [Suspect]
     Active Substance: LETROZOLE
     Route: 065
  12. IMODIUM [Concomitant]
     Active Substance: LOPERAMIDE HYDROCHLORIDE
  13. ZOMETA [Concomitant]
     Active Substance: ZOLEDRONIC ACID
     Route: 042
  14. HERCEPTIN [Suspect]
     Active Substance: TRASTUZUMAB
     Indication: PRODUCT USED FOR UNKNOWN INDICATION
     Route: 042
  15. ABRAXANE [Suspect]
     Active Substance: PACLITAXEL
     Indication: PRODUCT USED FOR UNKNOWN INDICATION
     Route: 065
  16. CARBOPLATIN. [Concomitant]
     Active Substance: CARBOPLATIN

REACTIONS (19)
  - Atelectasis [Unknown]
  - Arthralgia [Unknown]
  - Neutrophil count abnormal [Unknown]
  - Metastases to liver [Unknown]
  - Vomiting [Unknown]
  - Hypercalcaemia [Unknown]
  - Fatigue [Recovered/Resolved]
  - Dizziness [Unknown]
  - Pain [Unknown]
  - Oedema peripheral [Unknown]
  - Muscular weakness [Unknown]
  - Death [Fatal]
  - Tachycardia [Unknown]
  - Off label use [Unknown]
  - Asthenia [Unknown]
  - Neuropathy peripheral [Unknown]
  - Nodule [Unknown]
  - Ejection fraction decreased [Recovered/Resolved]
  - Breast cancer [Unknown]
